FAERS Safety Report 15981152 (Version 1)
Quarter: 2019Q1

REPORT INFORMATION
  Report Type: Spontaneous
  Country: US (occurrence: US)
  Receive Date: 20190218
  Receipt Date: 20190218
  Transmission Date: 20190418
  Serious: Yes (Other)
  Sender: FDA-Public Use
  Company Number: None

PATIENT
  Age: 14 Day
  Sex: Female
  Weight: 3.15 kg

DRUGS (1)
  1. DYE-FREE GRIP WATER [Suspect]
     Active Substance: DIETARY SUPPLEMENT
     Indication: HICCUPS
     Route: 048
     Dates: start: 20190129, end: 20190129

REACTIONS (2)
  - Dysphagia [None]
  - Choking [None]

NARRATIVE: CASE EVENT DATE: 20190129
